FAERS Safety Report 17581147 (Version 1)
Quarter: 2020Q1

REPORT INFORMATION
  Report Type: Spontaneous
  Country: US (occurrence: US)
  Receive Date: 20200325
  Receipt Date: 20200325
  Transmission Date: 20200409
  Serious: Yes (Other)
  Sender: FDA-Public Use
  Company Number: US-CROWNLABS-2020-US-005634

PATIENT
  Sex: Female

DRUGS (1)
  1. ZEASORB [Suspect]
     Active Substance: MICONAZOLE NITRATE
     Indication: PRODUCT USED FOR UNKNOWN INDICATION
     Dosage: EXPOSED TO PRODUCT USED BY HUSBAND
     Route: 055
     Dates: start: 1973, end: 1986

REACTIONS (1)
  - Mesothelioma malignant [Unknown]

NARRATIVE: CASE EVENT DATE: 20191119
